FAERS Safety Report 9098278 (Version 5)
Quarter: 2015Q1

REPORT INFORMATION
  Report Type: Spontaneous
  Country: BR (occurrence: BR)
  Receive Date: 20130213
  Receipt Date: 20150208
  Transmission Date: 20150721
  Serious: Yes (Hospitalization, Other)
  Sender: FDA-Public Use
  Company Number: BR-AMGEN-BRASP2013009157

PATIENT
  Age: 50 Year
  Sex: Male
  Weight: 40 kg

DRUGS (4)
  1. ENBREL [Suspect]
     Active Substance: ETANERCEPT
     Indication: RHEUMATOID ARTHRITIS
     Dosage: UNK
     Route: 065
  2. INDOCID                            /00003801/ [Concomitant]
     Active Substance: INDOMETHACIN
     Dosage: UNK
  3. ENBREL [Suspect]
     Active Substance: ETANERCEPT
     Dosage: 50 MG, QWK
     Route: 058
     Dates: start: 2013
  4. ARAVA [Concomitant]
     Active Substance: LEFLUNOMIDE
     Dosage: 1 TABLET (UNSPECIFIED DOSE), IN THE MORNING

REACTIONS (4)
  - Impaired healing [Unknown]
  - Rheumatoid arthritis [Unknown]
  - Wound [Unknown]
  - Fear [Unknown]
